FAERS Safety Report 8186866-0 (Version None)
Quarter: 2012Q1

REPORT INFORMATION
  Report Type: 
  Country: None (occurrence: None)
  Receive Date: 20120306
  Receipt Date: 20110510
  Transmission Date: 20120608
  Serious: Yes (Other)
  Sender: FDA-Public Use
  Company Number: US-BAYER-2011-041170

PATIENT
  Sex: Female

DRUGS (3)
  1. YAZ [Suspect]
     Dosage: UNK
     Dates: start: 20060101
  2. DROSPIRENONE AND ETHINYL ESTRADIOL [Suspect]
     Dosage: UNK
     Dates: start: 20060101
  3. YASMIN [Suspect]
     Dosage: UNK
     Dates: start: 20060101

REACTIONS (5)
  - INJURY [None]
  - ANXIETY [None]
  - PULMONARY EMBOLISM [None]
  - ANHEDONIA [None]
  - PAIN [None]
